FAERS Safety Report 10883495 (Version 1)
Quarter: 2015Q1

REPORT INFORMATION
  Report Type: Spontaneous
  Country: US (occurrence: US)
  Receive Date: 20150303
  Receipt Date: 20150303
  Transmission Date: 20150721
  Serious: Yes (Death)
  Sender: FDA-Public Use
  Company Number: US-ROCHE-1545568

PATIENT
  Age: 57 Year
  Sex: Male
  Weight: 75.36 kg

DRUGS (1)
  1. XELODA [Suspect]
     Active Substance: CAPECITABINE
     Indication: COLON CANCER
     Dosage: 4 BID
     Route: 048
     Dates: start: 20140924

REACTIONS (1)
  - Death [Fatal]

NARRATIVE: CASE EVENT DATE: 20150211
